FAERS Safety Report 17130253 (Version 1)
Quarter: 2019Q4

REPORT INFORMATION
  Report Type: Report from Study
  Country: US (occurrence: US)
  Receive Date: 20191209
  Receipt Date: 20191209
  Transmission Date: 20200122
  Serious: Yes (Death, Other)
  Sender: FDA-Public Use
  Company Number: US-TAKEDA-2019TUS044485

PATIENT
  Age: 83 Year
  Sex: Male

DRUGS (2)
  1. BRIGATINIB [Suspect]
     Active Substance: BRIGATINIB
     Indication: SALIVARY GLAND CANCER
     Dosage: 90 MILLIGRAM, QD
     Route: 065
  2. BRIGATINIB [Suspect]
     Active Substance: BRIGATINIB
     Indication: IMMUNE THROMBOCYTOPENIC PURPURA

REACTIONS (3)
  - Immune thrombocytopenic purpura [Fatal]
  - Salivary gland cancer [Fatal]
  - Off label use [Unknown]

NARRATIVE: CASE EVENT DATE: 20191021
